FAERS Safety Report 13647569 (Version 1)
Quarter: 2017Q2

REPORT INFORMATION
  Report Type: Spontaneous
  Country: CN (occurrence: CN)
  Receive Date: 20170613
  Receipt Date: 20170613
  Transmission Date: 20170830
  Serious: Yes (Other)
  Sender: FDA-Public Use
  Company Number: CN-ASTRAZENECA-2017SE61482

PATIENT
  Age: 26660 Day
  Sex: Male
  Weight: 77 kg

DRUGS (2)
  1. ESOMEPRAZOLE MAGNESIUM. [Concomitant]
     Active Substance: ESOMEPRAZOLE MAGNESIUM
     Indication: UPPER GASTROINTESTINAL HAEMORRHAGE
     Route: 048
     Dates: start: 20161222
  2. ESOMEPRAZOLE SODIUM. [Suspect]
     Active Substance: ESOMEPRAZOLE SODIUM
     Indication: UPPER GASTROINTESTINAL HAEMORRHAGE
     Route: 041
     Dates: start: 20161222, end: 20161229

REACTIONS (1)
  - Gout [Recovering/Resolving]

NARRATIVE: CASE EVENT DATE: 20161222
